FAERS Safety Report 5086810-9 (Version None)
Quarter: 2006Q3

REPORT INFORMATION
  Report Type: 
  Country: None (occurrence: None)
  Receive Date: 20060823
  Receipt Date: 20050207
  Transmission Date: 20061208
  Serious: Yes (Hospitalization)
  Sender: FDA-Public Use
  Company Number: JP-NOVOPROD-242171

PATIENT
  Age: 15 Year
  Sex: Male
  Weight: 36 kg

DRUGS (3)
  1. NORDITROPIN NORDIFLEX [Suspect]
     Indication: PRADER-WILLI SYNDROME
     Dosage: .5 IU/KG, PR.WEEK
     Dates: start: 19980727, end: 20050201
  2. THEO-DUR [Concomitant]
     Indication: ASTHMA
  3. ZADITEN [Concomitant]
     Indication: ASTHMA

REACTIONS (7)
  - CONDITION AGGRAVATED [None]
  - OBSTRUCTIVE AIRWAYS DISORDER [None]
  - OEDEMA [None]
  - PULMONARY HYPERTENSION [None]
  - RESTRICTIVE PULMONARY DISEASE [None]
  - RIGHT VENTRICULAR FAILURE [None]
  - SCOLIOSIS [None]
